FAERS Safety Report 8079774-7 (Version None)
Quarter: 2012Q1

REPORT INFORMATION
  Report Type: 
  Country: None (occurrence: None)
  Receive Date: 20120128
  Receipt Date: 20110730
  Transmission Date: 20120608
  Serious: No
  Sender: FDA-Public Use
  Company Number: US-ABBOTT-11P-163-0843001-00

PATIENT
  Age: 52 Year
  Sex: Female

DRUGS (1)
  1. HUMIRA [Suspect]
     Indication: CROHN'S DISEASE
     Dates: start: 20110501, end: 20110705

REACTIONS (6)
  - FATIGUE [None]
  - VISUAL IMPAIRMENT [None]
  - ARTHRALGIA [None]
  - PSORIASIS [None]
  - CALCINOSIS [None]
  - BACK PAIN [None]
